FAERS Safety Report 15739487 (Version 1)
Quarter: 2018Q4

REPORT INFORMATION
  Report Type: Spontaneous
  Country: US (occurrence: US)
  Receive Date: 20181219
  Receipt Date: 20181219
  Transmission Date: 20190205
  Serious: No
  Sender: FDA-Public Use
  Company Number: US-ALLERGAN-1827464US

PATIENT
  Age: 53 Year
  Sex: Male

DRUGS (1)
  1. BYSTOLIC [Suspect]
     Active Substance: NEBIVOLOL HYDROCHLORIDE
     Indication: ANXIETY
     Dosage: UNK
     Route: 065

REACTIONS (1)
  - Off label use [Unknown]
